FAERS Safety Report 6810862-6 (Version None)
Quarter: 2010Q2

REPORT INFORMATION
  Report Type: 
  Country: None (occurrence: None)
  Receive Date: 20100630
  Receipt Date: 20080408
  Transmission Date: 20101027
  Serious: Yes (Hospitalization, Other)
  Sender: FDA-Public Use
  Company Number: US-PFIZER INC-2008003266

PATIENT
  Sex: Female
  Weight: 136.1 kg

DRUGS (13)
  1. ESTRING [Suspect]
     Indication: ATROPHIC VULVOVAGINITIS
     Dates: start: 20070808, end: 20080101
  2. EFFEXOR [Concomitant]
  3. TRICOR [Concomitant]
  4. PROTONIX [Concomitant]
  5. ACETYLSALICYLIC ACID [Concomitant]
  6. NEURONTIN [Concomitant]
  7. SYNTHROID [Concomitant]
  8. BACLOFEN [Concomitant]
  9. LIPITOR [Concomitant]
  10. REMERON [Concomitant]
  11. SINGULAIR [Concomitant]
  12. ALBUTEROL [Concomitant]
  13. COLACE [Concomitant]

REACTIONS (2)
  - DYSPNOEA [None]
  - PULMONARY EMBOLISM [None]
